FAERS Safety Report 4549407-2 (Version None)
Quarter: 2005Q1

REPORT INFORMATION
  Report Type: 
  Country: None (occurrence: None)
  Receive Date: 20050110
  Receipt Date: 20050110
  Transmission Date: 20050727
  Serious: Yes (Other)
  Sender: FDA-Public Use
  Company Number: None

PATIENT
  Sex: Female

DRUGS (4)
  1. CORRECTOL [Suspect]
     Indication: WEIGHT CONTROL
     Dosage: INTERMITTENT ORAL
     Route: 048
     Dates: start: 19830101, end: 20030101
  2. EX-LAX [Suspect]
     Indication: WEIGHT CONTROL
     Dosage: INTERMITTENT ORAL
     Route: 048
     Dates: start: 19830101, end: 20030101
  3. DULCOLAX [Suspect]
     Indication: WEIGHT CONTROL
     Dosage: INTERMITTENT ORAL
     Route: 048
     Dates: start: 19830101, end: 20030101
  4. SANOREX [Concomitant]

REACTIONS (3)
  - HYPOGLYCAEMIA [None]
  - IRRITABLE BOWEL SYNDROME [None]
  - LAXATIVE ABUSE [None]
